FAERS Safety Report 4654650-8 (Version None)
Quarter: 2005Q2

REPORT INFORMATION
  Report Type: 
  Country: None (occurrence: None)
  Receive Date: 20050504
  Receipt Date: 20050504
  Transmission Date: 20051028
  Serious: Yes (Other)
  Sender: FDA-Public Use
  Company Number: None

PATIENT
  Age: 70 Year
  Sex: Female

DRUGS (1)
  1. REMICADE [Suspect]
     Indication: RHEUMATOID ARTHRITIS
     Dosage: 200 MG  INTRAVENOU
     Route: 042
     Dates: start: 20050125, end: 20050125

REACTIONS (5)
  - ABDOMINAL RIGIDITY [None]
  - FEELING ABNORMAL [None]
  - FLUSHING [None]
  - MUSCLE SPASMS [None]
  - PAIN [None]
